FAERS Safety Report 15698069 (Version 1)
Quarter: 2018Q4

REPORT INFORMATION
  Report Type: Report from Study
  Country: IT (occurrence: IT)
  Receive Date: 20181207
  Receipt Date: 20181207
  Transmission Date: 20190205
  Serious: Yes (Hospitalization)
  Sender: FDA-Public Use
  Company Number: IT-TEVA-2018-IT-982896

PATIENT
  Age: 47 Year
  Sex: Female

DRUGS (5)
  1. QUETIAPINE. [Suspect]
     Active Substance: QUETIAPINE
     Indication: INTENTIONAL SELF-INJURY
     Route: 048
     Dates: start: 20180915, end: 20180915
  2. CARDICOR 1,25 MG COMPRESSE RIVESTITE CON FILM [Concomitant]
  3. LITHIUM CARBONATE. [Concomitant]
     Active Substance: LITHIUM CARBONATE
  4. TAVOR 2,5 MG COMPRESSE [Concomitant]
     Active Substance: LORAZEPAM
  5. NOZINAN 100 MG COMPRESSE RIVESTITE CON FILM [Concomitant]
     Active Substance: LEVOMEPROMAZINE MALEATE

REACTIONS (2)
  - Substance abuse [Recovering/Resolving]
  - Sopor [Recovering/Resolving]

NARRATIVE: CASE EVENT DATE: 20180915
